FAERS Safety Report 11391204 (Version 1)
Quarter: 2015Q3

REPORT INFORMATION
  Report Type: Spontaneous
  Country: IT (occurrence: None)
  Receive Date: 20150813
  Receipt Date: 20150813
  Transmission Date: 20151125
  Serious: Yes (Life-Threatening)
  Sender: FDA-Public Use
  Company Number: 2015FE02642

PATIENT
  Age: 73 Year
  Sex: Female
  Weight: 55 kg

DRUGS (1)
  1. MINIRIN [Suspect]
     Active Substance: DESMOPRESSIN ACETATE
     Indication: NOCTURIA
     Dosage: 10 MCI/G,  DAILY,  NASAL
     Route: 045
     Dates: start: 20150601, end: 20150706

REACTIONS (2)
  - Generalised tonic-clonic seizure [None]
  - Sopor [None]

NARRATIVE: CASE EVENT DATE: 20150707
